FAERS Safety Report 20908747 (Version 2)
Quarter: 2022Q2

REPORT INFORMATION
  Report Type: Spontaneous
  Country: JP (occurrence: JP)
  Receive Date: 20220603
  Receipt Date: 20220609
  Transmission Date: 20220721
  Serious: Yes (Death, Hospitalization, Other)
  Sender: FDA-Public Use
  Company Number: JP-ADVANZ PHARMA-202205003188

PATIENT

DRUGS (28)
  1. ZONISAMIDE [Suspect]
     Active Substance: ZONISAMIDE
     Indication: Parkinson^s disease
     Dosage: 50 MG, QD,TRERIEF,  (25 MG 2 TABLETS ONCE DAILY AFTER SUPPER)
     Route: 048
  2. AROTINOLOL HYDROCHLORIDE [Suspect]
     Active Substance: AROTINOLOL HYDROCHLORIDE
     Indication: Product used for unknown indication
     Dosage: UNK
     Route: 048
  3. AROTINOLOL HYDROCHLORIDE [Suspect]
     Active Substance: AROTINOLOL HYDROCHLORIDE
     Dosage: 10 MG, QD (5 MG 2 TABLETS DIVIDED INTO 2 DOSES),AFTER BREAKFAST AND SUPPER
     Route: 048
  4. MOSAPRIDE CITRATE [Suspect]
     Active Substance: MOSAPRIDE CITRATE
     Indication: Product used for unknown indication
     Dosage: UNK
     Route: 048
  5. TRULICITY [Suspect]
     Active Substance: DULAGLUTIDE
     Indication: Type 2 diabetes mellitus
     Dosage: UNK
     Route: 058
  6. TRIHEXYPHENIDYL HYDROCHLORIDE [Suspect]
     Active Substance: TRIHEXYPHENIDYL HYDROCHLORIDE
     Indication: Product used for unknown indication
     Dosage: UNK,ORAL DRUG
     Route: 048
  7. ROPINIROLE HYDROCHLORIDE [Suspect]
     Active Substance: ROPINIROLE HYDROCHLORIDE
     Indication: Parkinson^s disease
     Dosage: UNK, ORAL DRUG
     Route: 048
  8. CARBIDOPA\LEVODOPA [Suspect]
     Active Substance: CARBIDOPA\LEVODOPA
     Indication: Parkinson^s disease
     Dosage: UNK
     Route: 048
  9. CARBIDOPA\LEVODOPA [Suspect]
     Active Substance: CARBIDOPA\LEVODOPA
     Dosage: 1.5 DOSAGE FORM, QD
     Route: 048
  10. CARBIDOPA\LEVODOPA [Suspect]
     Active Substance: CARBIDOPA\LEVODOPA
     Dosage: 50 MG, PRN,AS NECESSARY
     Route: 048
  11. INSULIN NOS [Suspect]
     Active Substance: INSULIN NOS
     Indication: Product used for unknown indication
     Dosage: UNK
     Route: 058
  12. AMANTADINE HYDROCHLORIDE [Suspect]
     Active Substance: AMANTADINE HYDROCHLORIDE
     Indication: Parkinson^s disease
     Dosage: UNK UNK, QD
     Route: 048
  13. AMANTADINE HYDROCHLORIDE [Suspect]
     Active Substance: AMANTADINE HYDROCHLORIDE
     Dosage: 100 MG, QD, (50 MG 2 TABLETS DIVIDED INTO 2 DOSES)
     Route: 048
  14. PRAMIPEXOLE DIHYDROCHLORIDE [Suspect]
     Active Substance: PRAMIPEXOLE DIHYDROCHLORIDE
     Indication: Parkinson^s disease
     Dosage: 0.75 MG, QD
     Route: 048
  15. PRAMIPEXOLE DIHYDROCHLORIDE [Suspect]
     Active Substance: PRAMIPEXOLE DIHYDROCHLORIDE
     Dosage: 1.5 MG, QD,ONCE DAILY, AFTER BREAKFAST
     Route: 048
     Dates: start: 201805
  16. ETIZOLAM [Suspect]
     Active Substance: ETIZOLAM
     Indication: Product used for unknown indication
     Dosage: UNK
     Route: 048
  17. HALCION [Suspect]
     Active Substance: TRIAZOLAM
     Indication: Product used for unknown indication
     Dosage: UNK
     Route: 048
  18. LORAZEPAM [Suspect]
     Active Substance: LORAZEPAM
     Indication: Product used for unknown indication
     Dosage: UNK
     Route: 065
  19. NEUPRO [Suspect]
     Active Substance: ROTIGOTINE
     Indication: Parkinson^s disease
     Dosage: 9 MG, QD
     Route: 062
  20. NEUPRO [Suspect]
     Active Substance: ROTIGOTINE
     Dosage: 18 MG, QD
     Route: 062
  21. CARBIDOPA\LEVODOPA [Suspect]
     Active Substance: CARBIDOPA\LEVODOPA
     Indication: Parkinson^s disease
     Dosage: 400 MG, QD, 4 TABLETS DIVIDED INTO 6 DOSES (0.5,1,0.5,1,0.5,0.5)
     Route: 048
  22. CARBIDOPA\LEVODOPA [Suspect]
     Active Substance: CARBIDOPA\LEVODOPA
     Dosage: 250 MG, QD,2.5 TABLETS DIVIDED INTO 3 DOSES, AFTER EACH MEAL (1-1-0.5)
     Route: 048
  23. LANSOPRAZOLE [Suspect]
     Active Substance: LANSOPRAZOLE
     Indication: Product used for unknown indication
     Dosage: UNK
     Route: 065
  24. ROZEREM [Suspect]
     Active Substance: RAMELTEON
     Indication: Product used for unknown indication
     Dosage: UNK
     Route: 048
  25. TRAZODONE HYDROCHLORIDE [Suspect]
     Active Substance: TRAZODONE HYDROCHLORIDE
     Indication: Product used for unknown indication
     Dosage: UNK
     Route: 048
  26. IMIDAPRIL HYDROCHLORIDE [Suspect]
     Active Substance: IMIDAPRIL HYDROCHLORIDE
     Indication: Product used for unknown indication
     Dosage: UNK
     Route: 048
  27. RALOXIFENE HYDROCHLORIDE [Suspect]
     Active Substance: RALOXIFENE HYDROCHLORIDE
     Indication: Product used for unknown indication
     Dosage: UNK
     Route: 048
  28. MITIGLINIDE CALCIUM ANHYDROUS [Suspect]
     Active Substance: MITIGLINIDE CALCIUM ANHYDROUS
     Indication: Type 2 diabetes mellitus
     Dosage: UNK
     Route: 048

REACTIONS (13)
  - Cardio-respiratory arrest [Fatal]
  - Pneumonia aspiration [Unknown]
  - Parkinsonism [Unknown]
  - Pneumonia aspiration [Unknown]
  - Hallucination [Unknown]
  - Delusion [Unknown]
  - Malignant catatonia [Unknown]
  - Parkinsonism [Recovering/Resolving]
  - Talipes [Unknown]
  - Dyskinesia [Unknown]
  - Joint contracture [Unknown]
  - Hyperhidrosis [Unknown]
  - Skin ulcer [Recovering/Resolving]

NARRATIVE: CASE EVENT DATE: 20140701
